FAERS Safety Report 8337084-4 (Version None)
Quarter: 2012Q2

REPORT INFORMATION
  Report Type: 
  Country: None (occurrence: None)
  Receive Date: 20120504
  Receipt Date: 20110805
  Transmission Date: 20120825
  Serious: Yes (Other)
  Sender: FDA-Public Use
  Company Number: US-TEVA-2011003648

PATIENT
  Sex: Female
  Weight: 102.15 kg

DRUGS (11)
  1. TRAZODONE HCL [Concomitant]
     Dates: start: 20020101
  2. ADVAIR DISKUS 100/50 [Concomitant]
  3. LORAZEPAM [Concomitant]
  4. SINGULAIR [Concomitant]
     Dates: start: 20080101
  5. EFFEXOR XR [Concomitant]
     Dates: start: 20040101
  6. NUVIGIL [Suspect]
     Route: 048
  7. NUVIGIL [Suspect]
     Indication: FATIGUE
     Dosage: 250 MILLIGRAM;
     Route: 048
     Dates: start: 20100601, end: 20110630
  8. AVONEX [Concomitant]
  9. TOPAMAX [Concomitant]
  10. IMITREX [Concomitant]
  11. SYNTHROID [Concomitant]
     Dates: start: 20040101

REACTIONS (6)
  - PSYCHOTIC DISORDER [None]
  - INTENTIONAL DRUG MISUSE [None]
  - AGGRESSION [None]
  - DRUG TOLERANCE [None]
  - SUICIDAL IDEATION [None]
  - DEPRESSION [None]
